FAERS Safety Report 5528719-X (Version None)
Quarter: 2007Q4

REPORT INFORMATION
  Report Type: 
  Country: None (occurrence: None)
  Receive Date: 20071114
  Receipt Date: 20070215
  Transmission Date: 20080405
  Serious: Yes (Other)
  Sender: FDA-Public Use
  Company Number: HQWYE942116FEB07

PATIENT
  Age: 61 Year
  Sex: Female
  Weight: 59.02 kg

DRUGS (1)
  1. ADVIL COLD AND SINUS [Suspect]
     Dosage: 2 CAPLETS, X1, ORAL
     Route: 048
     Dates: start: 20061101, end: 20061101

REACTIONS (2)
  - DYSPNOEA [None]
  - HYPERSENSITIVITY [None]
